FAERS Safety Report 19288094 (Version 1)
Quarter: 2021Q2

REPORT INFORMATION
  Report Type: Spontaneous
  Country: CA (occurrence: CA)
  Receive Date: 20210521
  Receipt Date: 20210521
  Transmission Date: 20210717
  Serious: Yes (Hospitalization)
  Sender: FDA-Public Use
  Company Number: CA-BAYER-2021-142530

PATIENT
  Sex: Female
  Weight: 63 kg

DRUGS (1)
  1. MIRENA [Suspect]
     Active Substance: LEVONORGESTREL
     Indication: CONTRACEPTION
     Dosage: 20 ?G PER DAY CONTINOUSLY
     Route: 015

REACTIONS (5)
  - Post-traumatic stress disorder [Recovering/Resolving]
  - Hypertrichosis [Recovering/Resolving]
  - Anxiety [Recovering/Resolving]
  - Stress [Recovering/Resolving]
  - Vertigo [Recovering/Resolving]
